FAERS Safety Report 13237898 (Version 8)
Quarter: 2018Q2

REPORT INFORMATION
  Report Type: Report from Study
  Country: None (occurrence: US)
  Receive Date: 20170216
  Receipt Date: 20180416
  Transmission Date: 20180711
  Serious: Yes (Hospitalization, Other)
  Sender: FDA-Public Use
  Company Number: US-ABBVIE-17K-163-1870562-00

PATIENT
  Age: 44 Year
  Sex: Female

DRUGS (3)
  1. HUMIRA [Suspect]
     Active Substance: ADALIMUMAB
     Indication: PSORIATIC ARTHROPATHY
     Route: 058
     Dates: start: 2007
  2. HUMIRA [Suspect]
     Active Substance: ADALIMUMAB
     Route: 058
  3. HUMIRA [Suspect]
     Active Substance: ADALIMUMAB
     Route: 058
     Dates: end: 20170922

REACTIONS (15)
  - Procedural pain [Recovered/Resolved]
  - Benign neoplasm [Recovering/Resolving]
  - Blood pressure increased [Recovering/Resolving]
  - Uterine cyst [Recovering/Resolving]
  - Wound [Unknown]
  - Pain in extremity [Unknown]
  - Psoriasis [Recovering/Resolving]
  - Arthralgia [Not Recovered/Not Resolved]
  - Infection [Recovered/Resolved]
  - Seasonal allergy [Unknown]
  - Myositis [Recovering/Resolving]
  - Post procedural complication [Unknown]
  - Uterine leiomyoma [Recovered/Resolved]
  - Fall [Unknown]
  - Uterine leiomyoma [Recovered/Resolved]

NARRATIVE: CASE EVENT DATE: 2010
